FAERS Safety Report 7586977-4 (Version None)
Quarter: 2011Q3

REPORT INFORMATION
  Report Type: 
  Country: None (occurrence: None)
  Receive Date: 20110701
  Receipt Date: 20110623
  Transmission Date: 20111222
  Serious: No
  Sender: FDA-Public Use
  Company Number: PHHY2011US41404

PATIENT
  Sex: Male
  Weight: 127.44 kg

DRUGS (1)
  1. GILENYA [Suspect]
     Indication: MULTIPLE SCLEROSIS
     Dosage: 0.5 MG, DAILY
     Route: 048
     Dates: start: 20110504, end: 20110504

REACTIONS (5)
  - HYPERHIDROSIS [None]
  - RASH ERYTHEMATOUS [None]
  - URTICARIA [None]
  - MIGRAINE [None]
  - HYPERTENSION [None]
